FAERS Safety Report 4338105-6 (Version None)
Quarter: 2004Q2

REPORT INFORMATION
  Report Type: 
  Country: None (occurrence: None)
  Receive Date: 20040407
  Receipt Date: 20040326
  Transmission Date: 20050107
  Serious: Yes (Hospitalization)
  Sender: FDA-Public Use
  Company Number: 04P-013-0246436-00

PATIENT
  Age: 55 Year
  Sex: Female

DRUGS (24)
  1. BIAXIN [Suspect]
     Indication: PYREXIA
     Dates: start: 20030622, end: 20030709
  2. AMPHOTERICIN B [Suspect]
     Indication: ACUTE MYELOID LEUKAEMIA
     Dosage: INTRAVENOUS
     Route: 042
     Dates: start: 20030623, end: 20030624
  3. CYTARABINE [Concomitant]
  4. AMSACRINE [Concomitant]
  5. PIPERACILLIN [Concomitant]
  6. TAZOBACTAM [Concomitant]
  7. MEROPENEM [Concomitant]
  8. PLATELETS, HUMA BLOOD [Concomitant]
  9. PERFUSION  MIXTE [Concomitant]
  10. RANITIDINE [Concomitant]
  11. FUROSEMIDE [Concomitant]
  12. ACYCLOVIR [Concomitant]
  13. IMIPENEM [Concomitant]
  14. TRAMADOL HCL [Concomitant]
  15. ACETAMINOPHEN [Concomitant]
  16. FILGRASTIM [Concomitant]
  17. LYNESTRENOL [Concomitant]
  18. LORMETAZEPAM [Concomitant]
  19. ALPRAZOLAM [Concomitant]
  20. CHLORHEXIDINE GLUCONATE [Concomitant]
  21. RED BLOOD CELLS [Concomitant]
  22. HEPARIN FRACTION, SODIUM  SALT [Concomitant]
  23. ALIZAPRIDE [Concomitant]
  24. AMPHOTERICIN B [Concomitant]

REACTIONS (6)
  - BRONCHOPNEUMONIA [None]
  - DEAFNESS [None]
  - HEADACHE [None]
  - LEUKAEMIA RECURRENT [None]
  - OTITIS MEDIA [None]
  - RHINORRHOEA [None]
